FAERS Safety Report 6987071-3 (Version None)
Quarter: 2010Q3

REPORT INFORMATION
  Report Type: 
  Country: None (occurrence: None)
  Receive Date: 20100916
  Receipt Date: 20100910
  Transmission Date: 20110219
  Serious: Yes (Hospitalization, Other)
  Sender: FDA-Public Use
  Company Number: US-BAYER-200832732NA

PATIENT
  Age: 20 Year
  Sex: Female
  Weight: 64 kg

DRUGS (2)
  1. YAZ [Suspect]
     Indication: HEADACHE
     Dosage: DAILY CONTINUOUS
     Route: 048
     Dates: start: 20080301, end: 20080801
  2. YASMIN [Suspect]
     Indication: HEADACHE
     Dates: start: 20080301, end: 20080801

REACTIONS (2)
  - DEEP VEIN THROMBOSIS [None]
  - THROMBOSIS [None]
